FAERS Safety Report 7215430-2 (Version None)
Quarter: 2011Q1

REPORT INFORMATION
  Report Type: 
  Country: None (occurrence: None)
  Receive Date: 20110105
  Receipt Date: 20110105
  Transmission Date: 20110831
  Serious: Yes (Other)
  Sender: FDA-Public Use
  Company Number: None

PATIENT
  Age: 49 Year
  Sex: Female
  Weight: 107.0489 kg

DRUGS (1)
  1. ADVAIR DISKUS 100/50 [Suspect]
     Indication: ASTHMA
     Dosage: 1 INHALATION TWICE A DAY PO
     Route: 048
     Dates: start: 20100401

REACTIONS (5)
  - HEADACHE [None]
  - BLOOD PRESSURE INCREASED [None]
  - ANXIETY [None]
  - DEVICE DAMAGE [None]
  - DRUG DOSE OMISSION [None]
